FAERS Safety Report 10817446 (Version 1)
Quarter: 2015Q1

REPORT INFORMATION
  Report Type: Spontaneous
  Country: CH (occurrence: None)
  Receive Date: 20150213
  Receipt Date: 20150213
  Transmission Date: 20150721
  Serious: Yes (Other)
  Sender: FDA-Public Use
  Company Number: 20150070

PATIENT
  Age: 41 Year
  Sex: Female
  Weight: 55 kg

DRUGS (2)
  1. IRON [Concomitant]
     Active Substance: IRON
  2. FERINJECT [Suspect]
     Active Substance: FERRIC CARBOXYMALTOSE
     Indication: IRON DEFICIENCY ANAEMIA
     Route: 042
     Dates: start: 20150121, end: 20150121

REACTIONS (5)
  - Dizziness [None]
  - Tachypnoea [None]
  - Tachycardia [None]
  - Pallor [None]
  - Paraesthesia [None]

NARRATIVE: CASE EVENT DATE: 20150121
